FAERS Safety Report 5021344-9 (Version None)
Quarter: 2006Q2

REPORT INFORMATION
  Report Type: 
  Country: None (occurrence: None)
  Receive Date: 20060608
  Receipt Date: 20050913
  Transmission Date: 20061013
  Serious: Yes (Hospitalization, Disabling)
  Sender: FDA-Public Use
  Company Number: US-BRISTOL-MYERS SQUIBB COMPANY-13113774

PATIENT
  Age: 68 Year
  Sex: Male

DRUGS (2)
  1. SINEMET [Suspect]
     Indication: PARKINSON'S DISEASE
     Route: 048
     Dates: start: 20030101
  2. COZAAR [Concomitant]

REACTIONS (3)
  - FALL [None]
  - HALLUCINATION [None]
  - MALAISE [None]
